FAERS Safety Report 8776984 (Version 2)
Quarter: 2012Q4

REPORT INFORMATION
  Report Type: 
  Country: FR (occurrence: FR)
  Receive Date: 20120911
  Receipt Date: 20120927
  Transmission Date: 20130627
  Serious: Yes (Hospitalization)
  Sender: FDA-Public Use
  Company Number: FR-GLAXOSMITHKLINE-B0827316A

PATIENT
  Age: 30 Year
  Sex: Female

DRUGS (2)
  1. FLIXOTIDE [Suspect]
     Indication: ASTHMA
     Dosage: 250MCG Twice per day
     Route: 055
     Dates: start: 2012
  2. VENTOLINE [Concomitant]

REACTIONS (4)
  - Asthmatic crisis [Recovered/Resolved]
  - Treatment noncompliance [Unknown]
  - Loss of consciousness [Recovered/Resolved]
  - Product quality issue [Unknown]
